FAERS Safety Report 20895233 (Version 2)
Quarter: 2022Q2

REPORT INFORMATION
  Report Type: Spontaneous
  Country: AU (occurrence: AU)
  Receive Date: 20220531
  Receipt Date: 20220610
  Transmission Date: 20220721
  Serious: Yes (Other)
  Sender: FDA-Public Use
  Company Number: AU-ENDO PHARMACEUTICALS INC-2022-003438

PATIENT
  Age: 55 Year
  Sex: Male

DRUGS (3)
  1. AVEED [Suspect]
     Active Substance: TESTOSTERONE UNDECANOATE
     Indication: Androgen deficiency
     Dosage: UNK UNKNOWN, UNKNOWN (DEPOT INJECTIONS)
     Route: 065
  2. VERAPAMIL                          /00014302/ [Concomitant]
     Indication: Product used for unknown indication
     Dosage: 240 MG, DAILY (SUSTAINED RELEASE)
     Route: 048
  3. HYDRALAZINE [Concomitant]
     Active Substance: HYDRALAZINE HYDROCHLORIDE
     Indication: Product used for unknown indication
     Dosage: 25 MG, DAILY
     Route: 065

REACTIONS (1)
  - Adrenal adenoma [Recovered/Resolved]
